FAERS Safety Report 14282165 (Version 2)
Quarter: 2018Q1

REPORT INFORMATION
  Report Type: Spontaneous
  Country: RS (occurrence: RS)
  Receive Date: 20171213
  Receipt Date: 20180313
  Transmission Date: 20180508
  Serious: Yes (Death)
  Sender: FDA-Public Use
  Company Number: RS-PFIZER INC-2017518121

PATIENT
  Age: 36 Year
  Sex: Male

DRUGS (1)
  1. XALKORI [Suspect]
     Active Substance: CRIZOTINIB
     Indication: LUNG NEOPLASM MALIGNANT
     Dosage: UNK
     Dates: start: 2015

REACTIONS (2)
  - Death [Fatal]
  - Neoplasm progression [Unknown]
